FAERS Safety Report 22247051 (Version 2)
Quarter: 2023Q2

REPORT INFORMATION
  Report Type: Spontaneous
  Country: TR (occurrence: TR)
  Receive Date: 20230424
  Receipt Date: 20230509
  Transmission Date: 20230721
  Serious: Yes (Hospitalization)
  Sender: FDA-Public Use
  Company Number: TR-BEH-2023157759

PATIENT
  Age: 7 Year
  Sex: Male

DRUGS (6)
  1. HIZENTRA [Suspect]
     Active Substance: HUMAN IMMUNOGLOBULIN G
     Indication: Product used for unknown indication
     Dosage: UNK
     Route: 058
     Dates: start: 2022
  2. HIZENTRA [Suspect]
     Active Substance: HUMAN IMMUNOGLOBULIN G
     Dosage: UNK
     Route: 058
     Dates: start: 20230408
  3. COLCHICINE [Concomitant]
     Active Substance: COLCHICINE
     Indication: Infection
  4. COLCHICINE [Concomitant]
     Active Substance: COLCHICINE
     Indication: Hydronephrosis
  5. RESPIRO [Concomitant]
     Indication: Infection
  6. RESPIRO [Concomitant]
     Indication: Hydronephrosis

REACTIONS (4)
  - Infection [Recovered/Resolved]
  - Hydronephrosis [Recovered/Resolved]
  - Kidney enlargement [Recovered/Resolved]
  - Urinary tract infection [Unknown]
